FAERS Safety Report 7817883-5 (Version None)
Quarter: 2011Q4

REPORT INFORMATION
  Report Type: 
  Country: None (occurrence: None)
  Receive Date: 20111017
  Receipt Date: 20111005
  Transmission Date: 20120403
  Serious: Yes (Other)
  Sender: FDA-Public Use
  Company Number: US-JNJFOC-20111005197

PATIENT
  Sex: Female

DRUGS (1)
  1. IBUPROFEN [Suspect]
     Indication: PRODUCT USED FOR UNKNOWN INDICATION
     Route: 065

REACTIONS (5)
  - MATERNAL EXPOSURE DURING PREGNANCY [None]
  - BONE PAIN [None]
  - PARAESTHESIA [None]
  - GAIT DISTURBANCE [None]
  - ABORTION SPONTANEOUS [None]
